FAERS Safety Report 7964083-4 (Version None)
Quarter: 2011Q4

REPORT INFORMATION
  Report Type: 
  Country: None (occurrence: None)
  Receive Date: 20111208
  Receipt Date: 20111204
  Transmission Date: 20120403
  Serious: Yes (Hospitalization)
  Sender: FDA-Public Use
  Company Number: NL-AMGEN-NLDSP2011056520

PATIENT
  Age: 54 Year
  Sex: Female
  Weight: 49 kg

DRUGS (13)
  1. LACTULOSE [Concomitant]
     Indication: CONSTIPATION
     Dosage: 15 ML, TID
  2. COTRIM [Concomitant]
     Indication: PROPHYLAXIS
     Dosage: 480 MG, UNK
     Route: 048
     Dates: start: 20110509, end: 20110910
  3. PREDNISONE TAB [Suspect]
     Indication: DIFFUSE LARGE B-CELL LYMPHOMA
     Dosage: 100 MG, UNK
     Route: 048
     Dates: start: 20110510
  4. NYSTATIN [Concomitant]
     Dosage: 4 ML, UNK
     Route: 048
     Dates: end: 20110603
  5. VALACICLOVIR [Concomitant]
     Dosage: 500 MG, UNK
     Dates: start: 20110823, end: 20110918
  6. RITUXIMAB [Suspect]
     Indication: DIFFUSE LARGE B-CELL LYMPHOMA
     Dosage: 600 MG, UNK
     Route: 042
     Dates: start: 20110410
  7. NAPROXEN [Concomitant]
     Indication: PAIN
  8. ALLOPURINOL [Concomitant]
     Dosage: 300 MG, QD
  9. CYCLOPHOSPHAMIDE [Suspect]
     Indication: DIFFUSE LARGE B-CELL LYMPHOMA
     Dosage: 1200 MG, UNK
     Route: 042
     Dates: start: 20110510
  10. NEUPOGEN [Suspect]
     Indication: DIFFUSE LARGE B-CELL LYMPHOMA
     Dosage: 6 MG, UNK
     Route: 058
     Dates: start: 20110512
  11. DOXORUBICIN HCL [Suspect]
     Indication: DIFFUSE LARGE B-CELL LYMPHOMA
     Dosage: 80 MG, UNK
     Route: 042
     Dates: start: 20110510
  12. VINCRISTINE [Suspect]
     Indication: DIFFUSE LARGE B-CELL LYMPHOMA
     Dosage: 10 MG, UNK
     Route: 042
     Dates: start: 20110510
  13. PANTOPRAZOLE [Concomitant]
     Indication: PEPTIC ULCER
     Dosage: 40 MG, UNK

REACTIONS (1)
  - FEBRILE NEUTROPENIA [None]
